FAERS Safety Report 4819843-5 (Version None)
Quarter: 2005Q4

REPORT INFORMATION
  Report Type: 
  Country: None (occurrence: None)
  Receive Date: 20051102
  Receipt Date: 20051019
  Transmission Date: 20060501
  Serious: Yes (Life-Threatening, Hospitalization)
  Sender: FDA-Public Use
  Company Number: 430014M05DEU

PATIENT
  Age: 52 Year
  Sex: Female

DRUGS (1)
  1. MITOXANTRONE [Suspect]
     Indication: MULTIPLE SCLEROSIS
     Dosage: 14 MG, ONCE, INTRAVENOUS (NOT OTHERWISE SPECIFIED)
     Route: 042
     Dates: start: 20050608, end: 20050608

REACTIONS (4)
  - AUTOIMMUNE HEPATITIS [None]
  - CONDITION AGGRAVATED [None]
  - DRUG TOXICITY [None]
  - HEPATIC ENCEPHALOPATHY [None]
